FAERS Safety Report 26047006 (Version 1)
Quarter: 2025Q4

REPORT INFORMATION
  Report Type: Spontaneous
  Country: US (occurrence: None)
  Receive Date: 20251114
  Receipt Date: 20251114
  Transmission Date: 20260117
  Serious: No
  Sender: FDA-CTU
  Company Number: None

PATIENT
  Age: 63 Year
  Sex: Female
  Weight: 74.25 kg

DRUGS (11)
  1. OHTUVAYRE [Suspect]
     Active Substance: ENSIFENTRINE
     Indication: Chronic obstructive pulmonary disease
     Dosage: OTHER QUANTITY : 60 AMPULES;?FREQUENCY : TWICE A DAY;
     Route: 055
     Dates: start: 20251028, end: 20251113
  2. Albuterol(pa) Hfa Inh 8.5gm 90 mcg [Concomitant]
  3. Metoprolol Tartrate Tabs 100 mg [Concomitant]
  4. Ohtuvayre 3 mg/2.5 ml [Concomitant]
  5. AMLODIPINE BESYLATE [Concomitant]
     Active Substance: AMLODIPINE BESYLATE
  6. Breyna Inhaler 10.3gm 80/4.5 [Concomitant]
  7. METHOCARBAMOL [Concomitant]
     Active Substance: METHOCARBAMOL
  8. L-thyroxine (synthroid) Tabs 75 mcg [Concomitant]
  9. Lisinopril Tabs 40 mg [Concomitant]
  10. Cetrizine HCI 10 mg [Concomitant]
  11. Vitamin D 125 mcg (5,000 IU) [Concomitant]

REACTIONS (3)
  - Mood swings [None]
  - Neck pain [None]
  - Stress [None]

NARRATIVE: CASE EVENT DATE: 20251103
